FAERS Safety Report 4527131-X (Version None)
Quarter: 2004Q4

REPORT INFORMATION
  Report Type: 
  Country: None (occurrence: None)
  Receive Date: 20041202
  Receipt Date: 20031001
  Transmission Date: 20050328
  Serious: No
  Sender: FDA-Public Use
  Company Number: 20031000067

PATIENT
  Age: 31 Year
  Sex: Male

DRUGS (2)
  1. PHENERGAN [Suspect]
     Indication: NAUSEA
     Dosage: 25 MG ONCE IV
     Route: 042
     Dates: start: 20030602, end: 20030602
  2. PHENERGAN [Suspect]
     Indication: VOMITING
     Dosage: 25 MG ONCE IV
     Route: 042
     Dates: start: 20030602, end: 20030602

REACTIONS (3)
  - HYPOAESTHESIA [None]
  - NEURITIS [None]
  - PHLEBITIS [None]
